FAERS Safety Report 10899034 (Version 2)
Quarter: 2015Q1

REPORT INFORMATION
  Report Type: Spontaneous
  Country: AU (occurrence: AU)
  Receive Date: 20150309
  Receipt Date: 20150330
  Transmission Date: 20150721
  Serious: Yes (Other)
  Sender: FDA-Public Use
  Company Number: AU-PFIZER INC-2015082946

PATIENT
  Age: 83 Year
  Sex: Male

DRUGS (11)
  1. ATORVASTATIN [Concomitant]
     Active Substance: ATORVASTATIN
  2. ZYVOX [Suspect]
     Active Substance: LINEZOLID
     Indication: ENDOCARDITIS ENTEROCOCCAL
     Dosage: 600 MG, 2X/DAY
     Route: 042
     Dates: start: 20150107, end: 20150112
  3. FRUSEMIDE [Concomitant]
     Active Substance: FUROSEMIDE
  4. BISOPROLOL [Concomitant]
     Active Substance: BISOPROLOL
  5. SALBUTAMOL [Concomitant]
     Active Substance: ALBUTEROL
  6. PANTOPRAZOLE [Concomitant]
     Active Substance: PANTOPRAZOLE SODIUM
  7. FERROTAB [Concomitant]
  8. ALLOPURINOL. [Concomitant]
     Active Substance: ALLOPURINOL
  9. SPIRONOLACTONE. [Concomitant]
     Active Substance: SPIRONOLACTONE
  10. TELMISARTAN. [Concomitant]
     Active Substance: TELMISARTAN
  11. DIGOXIN. [Concomitant]
     Active Substance: DIGOXIN

REACTIONS (1)
  - Thrombocytopenia [Recovered/Resolved]

NARRATIVE: CASE EVENT DATE: 20150112
